FAERS Safety Report 7323170-4 (Version None)
Quarter: 2011Q1

REPORT INFORMATION
  Report Type: 
  Country: None (occurrence: None)
  Receive Date: 20110301
  Receipt Date: 20110220
  Transmission Date: 20110831
  Serious: Yes (Other)
  Sender: FDA-Public Use
  Company Number: BR-SANOFI-AVENTIS-200921948GDDC

PATIENT
  Age: 9 Month
  Sex: Female

DRUGS (3)
  1. PREDNISONE [Suspect]
     Indication: RHEUMATOID ARTHRITIS
     Route: 064
     Dates: start: 20040101
  2. ARAVA [Suspect]
     Indication: RHEUMATOID ARTHRITIS
     Route: 064
     Dates: start: 20090814, end: 20090916
  3. CHLOROQUINE [Suspect]
     Indication: RHEUMATOID ARTHRITIS
     Route: 064
     Dates: start: 20040101

REACTIONS (2)
  - RENAL DISORDER [None]
  - DRUG EXPOSURE DURING PREGNANCY [None]
